FAERS Safety Report 13839652 (Version 1)
Quarter: 2017Q3

REPORT INFORMATION
  Report Type: Spontaneous
  Country: US (occurrence: US)
  Receive Date: 20170805
  Receipt Date: 20170805
  Transmission Date: 20171127
  Serious: No
  Sender: FDA-Public Use
  Company Number: None

PATIENT
  Age: 31 Year
  Sex: Male

DRUGS (27)
  1. CHLORHEXADINE [Concomitant]
     Active Substance: CHLORHEXIDINE
  2. FLUORIDE TOPICAL [Concomitant]
  3. GABAPENTIN. [Concomitant]
     Active Substance: GABAPENTIN
  4. LORATADINE. [Concomitant]
     Active Substance: LORATADINE
  5. TEMAZEPAM. [Concomitant]
     Active Substance: TEMAZEPAM
  6. METHOTREXATE. [Suspect]
     Active Substance: METHOTREXATE
     Indication: PROPHYLAXIS AGAINST GRAFT VERSUS HOST DISEASE
     Route: 042
     Dates: start: 20170413
  7. HYDROMORPHONE [Concomitant]
     Active Substance: HYDROMORPHONE
  8. OXYCODONE [Concomitant]
     Active Substance: OXYCODONE
  9. BACLOFEN. [Concomitant]
     Active Substance: BACLOFEN
  10. LANSOPRAZOLE. [Concomitant]
     Active Substance: LANSOPRAZOLE
  11. LORAZAPAM [Concomitant]
     Active Substance: LORAZEPAM
  12. ONDANSETRON [Concomitant]
     Active Substance: ONDANSETRON
  13. LOPERAMIDE [Concomitant]
     Active Substance: LOPERAMIDE
  14. METHOTREXATE. [Concomitant]
     Active Substance: METHOTREXATE
  15. PROCHLORPERAZINE. [Concomitant]
     Active Substance: PROCHLORPERAZINE
  16. TACROLIMUS. [Concomitant]
     Active Substance: TACROLIMUS
  17. VITAMIN E [Concomitant]
     Active Substance: .ALPHA.-TOCOPHEROL
  18. CASPOFUNGIN [Concomitant]
     Active Substance: CASPOFUNGIN
  19. SODIUM CHLORIDE NASAL SPRAY [Concomitant]
  20. CALCIUM CARBONATE. [Concomitant]
     Active Substance: CALCIUM CARBONATE
  21. GLUTAMINE [Concomitant]
     Active Substance: GLUTAMINE
  22. INSULIN [Concomitant]
     Active Substance: INSULIN NOS
  23. MUPIROCIN. [Concomitant]
     Active Substance: MUPIROCIN
  24. VANCOMYCIN [Concomitant]
     Active Substance: VANCOMYCIN
  25. ACETAMINOPHEN. [Concomitant]
     Active Substance: ACETAMINOPHEN
  26. ACYCLOVIR. [Concomitant]
     Active Substance: ACYCLOVIR
  27. DIPHENHYDRAMINE. [Concomitant]
     Active Substance: DIPHENHYDRAMINE

REACTIONS (3)
  - Mucosal inflammation [None]
  - Blood bilirubin increased [None]
  - Feeding disorder [None]

NARRATIVE: CASE EVENT DATE: 20170418
